FAERS Safety Report 18452149 (Version 1)
Quarter: 2020Q4

REPORT INFORMATION
  Report Type: Other
  Country: CA (occurrence: CA)
  Receive Date: 20201102
  Receipt Date: 20201102
  Transmission Date: 20210114
  Serious: Yes (Life-Threatening, Hospitalization, Other)
  Sender: FDA-Public Use
  Company Number: CA-APOTEX-2020AP020649

PATIENT
  Age: 52 Year
  Sex: Male

DRUGS (27)
  1. LORAZEPAM. [Interacting]
     Active Substance: LORAZEPAM
     Dosage: 1 MILLIGRAM
     Route: 048
  2. LORAZEPAM. [Interacting]
     Active Substance: LORAZEPAM
     Indication: INSOMNIA
     Dosage: 30 MILLIGRAM
     Route: 048
  3. MORPHINE [Interacting]
     Active Substance: MORPHINE
     Dosage: 100 MILLIGRAM
     Route: 065
  4. CITALOPRAM [Suspect]
     Active Substance: CITALOPRAM HYDROBROMIDE
     Indication: DEPRESSION
     Dosage: UNK
     Route: 048
  5. MORPHINE [Interacting]
     Active Substance: MORPHINE
     Dosage: 15 MILLIGRAM
     Route: 065
  6. MORPHINE [Interacting]
     Active Substance: MORPHINE
     Dosage: 2640 MILLIGRAM
     Route: 065
  7. DIAZEPAM. [Interacting]
     Active Substance: DIAZEPAM
     Dosage: 10 MILLIGRAM
     Route: 065
  8. OXYCODONE [Interacting]
     Active Substance: OXYCODONE
     Dosage: UNK
     Route: 048
  9. OXYCODONE [Interacting]
     Active Substance: OXYCODONE
     Dosage: 10 MILLIGRAM
     Route: 065
  10. ZOPICLONE [Interacting]
     Active Substance: ZOPICLONE
     Indication: SPINAL STENOSIS
     Dosage: 187.5 MILLIGRAM
     Route: 048
  11. ALTACE [Interacting]
     Active Substance: RAMIPRIL
     Indication: PRODUCT USED FOR UNKNOWN INDICATION
     Dosage: UNK
     Route: 065
  12. MORPHINE [Interacting]
     Active Substance: MORPHINE
     Indication: SPINAL STENOSIS
     Dosage: UNK
     Route: 048
  13. MORPHINE [Interacting]
     Active Substance: MORPHINE
     Dosage: 9500 MILLIGRAM
     Route: 065
  14. MORPHINE [Interacting]
     Active Substance: MORPHINE
     Dosage: 30 MILLIGRAM
     Route: 048
  15. DIAZEPAM. [Interacting]
     Active Substance: DIAZEPAM
     Indication: SPINAL STENOSIS
     Dosage: UNK
     Route: 048
  16. DIAZEPAM. [Interacting]
     Active Substance: DIAZEPAM
     Dosage: 1800 MILLIGRAM
     Route: 048
  17. OXYCODONE/ACETAMINOPHEN [Interacting]
     Active Substance: ACETAMINOPHEN\OXYCODONE HYDROCHLORIDE
     Indication: PRODUCT USED FOR UNKNOWN INDICATION
     Dosage: UNK
     Route: 048
  18. CIPRALEX [Suspect]
     Active Substance: ESCITALOPRAM OXALATE
     Indication: DEPRESSION
     Dosage: 10 MILLIGRAM
     Route: 065
  19. OXYCODONE [Interacting]
     Active Substance: OXYCODONE
     Dosage: UNK
     Route: 065
  20. ZOPICLONE [Interacting]
     Active Substance: ZOPICLONE
     Dosage: 15 MILLIGRAM, QD
     Route: 048
  21. MORPHINE [Interacting]
     Active Substance: MORPHINE
     Indication: DEPRESSION
     Dosage: 30 MILLIGRAM, QD
     Route: 048
  22. OXYCODONE [Interacting]
     Active Substance: OXYCODONE
     Indication: SPINAL STENOSIS
     Dosage: 20 MILLIGRAM
     Route: 048
  23. ZOPICLONE [Interacting]
     Active Substance: ZOPICLONE
     Dosage: 7.5 MILLIGRAM
     Route: 065
  24. CIPRALEX [Suspect]
     Active Substance: ESCITALOPRAM OXALATE
     Dosage: 140 MILLIGRAM
     Route: 048
  25. CIPRALEX [Suspect]
     Active Substance: ESCITALOPRAM OXALATE
     Dosage: 10 MILLIGRAM, QD
     Route: 065
  26. MORPHINE [Interacting]
     Active Substance: MORPHINE
     Dosage: 420 MILLIGRAM
     Route: 065
  27. MORPHINE [Interacting]
     Active Substance: MORPHINE
     Dosage: 30 MILLIGRAM, QD
     Route: 065

REACTIONS (22)
  - Mechanical ventilation [Recovering/Resolving]
  - Hypotension [Recovering/Resolving]
  - Heart rate decreased [Recovering/Resolving]
  - Electrocardiogram QT prolonged [Recovering/Resolving]
  - Coma [Recovering/Resolving]
  - Blood creatinine increased [Recovering/Resolving]
  - Intentional overdose [Recovering/Resolving]
  - Drug screen positive [Recovering/Resolving]
  - Blood potassium increased [Recovering/Resolving]
  - Bradycardia [Recovering/Resolving]
  - Sinus tachycardia [Recovering/Resolving]
  - Coma scale abnormal [Recovering/Resolving]
  - Overdose [Recovering/Resolving]
  - Oxygen saturation decreased [Recovering/Resolving]
  - Opiates positive [Recovering/Resolving]
  - Drug interaction [Recovering/Resolving]
  - Electrocardiogram abnormal [Recovering/Resolving]
  - Hyperkalaemia [Recovering/Resolving]
  - Loss of consciousness [Recovering/Resolving]
  - Suicide attempt [Recovering/Resolving]
  - Blood pressure decreased [Recovering/Resolving]
  - Blood creatine phosphokinase increased [Recovering/Resolving]
